FAERS Safety Report 11334948 (Version 1)
Quarter: 2015Q3

REPORT INFORMATION
  Report Type: Spontaneous
  Country: US (occurrence: None)
  Receive Date: 20150731
  Receipt Date: 20150731
  Transmission Date: 20151125
  Serious: No
  Sender: FDA-Public Use
  Company Number: None

PATIENT
  Age: 71 Year
  Sex: Female
  Weight: 53.52 kg

DRUGS (9)
  1. DORZOLAMIDE [Concomitant]
     Active Substance: DORZOLAMIDE
  2. BRIMONIDINE [Concomitant]
     Active Substance: BRIMONIDINE TARTRATE
  3. ATORVASTATIN [Concomitant]
     Active Substance: ATORVASTATIN
  4. FORTEO [Suspect]
     Active Substance: TERIPARATIDE
     Indication: OSTEOPOROSIS
     Route: 058
     Dates: start: 20150710, end: 20150711
  5. LATANOPROST. [Concomitant]
     Active Substance: LATANOPROST
  6. METOPROLOL [Concomitant]
     Active Substance: METOPROLOL
  7. ALPHAGAN P [Concomitant]
     Active Substance: BRIMONIDINE TARTRATE
  8. PREDNISOLONE. [Concomitant]
     Active Substance: PREDNISOLONE
  9. LEVOTHYROXINE. [Concomitant]
     Active Substance: LEVOTHYROXINE

REACTIONS (2)
  - Macular oedema [None]
  - Iritis [None]

NARRATIVE: CASE EVENT DATE: 20150710
